FAERS Safety Report 5218724-5 (Version None)
Quarter: 2007Q1

REPORT INFORMATION
  Report Type: 
  Country: None (occurrence: None)
  Receive Date: 20070122
  Receipt Date: 20070112
  Transmission Date: 20070707
  Serious: Yes (Other)
  Sender: FDA-Public Use
  Company Number: 144962USA

PATIENT
  Age: 43 Year
  Sex: Male

DRUGS (3)
  1. PAROXETINE HYDROCHLORIDE [Suspect]
     Indication: GENERALISED ANXIETY DISORDER
     Dosage: 40 MG(ONCE A DAY), ORAL
     Route: 048
     Dates: start: 20050820, end: 20051002
  2. MIRTAZAPINE [Concomitant]
  3. OLANZAPINE [Concomitant]

REACTIONS (45)
  - ABDOMINAL PAIN UPPER [None]
  - AGGRESSION [None]
  - AGITATION [None]
  - AMNESIA [None]
  - ANGER [None]
  - ANOREXIA [None]
  - ANXIETY [None]
  - CONFUSIONAL STATE [None]
  - CONSTIPATION [None]
  - COORDINATION ABNORMAL [None]
  - DEPRESSION [None]
  - DIARRHOEA [None]
  - DISTURBANCE IN ATTENTION [None]
  - DIZZINESS [None]
  - DYSGRAPHIA [None]
  - DYSPEPSIA [None]
  - EMOTIONAL DISORDER [None]
  - EMOTIONAL DISTRESS [None]
  - FATIGUE [None]
  - FEELING OF BODY TEMPERATURE CHANGE [None]
  - FLATULENCE [None]
  - FRUSTRATION [None]
  - GAIT DISTURBANCE [None]
  - HEADACHE [None]
  - HOMICIDAL IDEATION [None]
  - HYPERHIDROSIS [None]
  - INSOMNIA [None]
  - IRRITABILITY [None]
  - MENTAL IMPAIRMENT [None]
  - MICTURITION DISORDER [None]
  - MOOD ALTERED [None]
  - MUSCULOSKELETAL STIFFNESS [None]
  - NAUSEA [None]
  - PAINFUL ERECTION [None]
  - PANIC ATTACK [None]
  - PARANOIA [None]
  - PRURITUS [None]
  - READING DISORDER [None]
  - RESTLESS LEGS SYNDROME [None]
  - RESTLESSNESS [None]
  - SEMEN ABNORMAL [None]
  - STOMACH DISCOMFORT [None]
  - SUICIDAL IDEATION [None]
  - TREMOR [None]
  - WEIGHT DECREASED [None]
